FAERS Safety Report 20322419 (Version 1)
Quarter: 2022Q1

REPORT INFORMATION
  Report Type: Spontaneous
  Country: US (occurrence: US)
  Receive Date: 20220111
  Receipt Date: 20220111
  Transmission Date: 20220423
  Serious: No
  Sender: FDA-Public Use
  Company Number: US-ABBVIE-21K-163-3726974-00

PATIENT
  Age: 77 Year
  Sex: Male
  Weight: 90.800 kg

DRUGS (3)
  1. DUOPA [Suspect]
     Active Substance: CARBIDOPA\LEVODOPA
     Indication: Product used for unknown indication
     Route: 050
     Dates: start: 202008
  2. DUOPA [Suspect]
     Active Substance: CARBIDOPA\LEVODOPA
  3. RYTARY [Concomitant]
     Active Substance: CARBIDOPA\LEVODOPA
     Indication: Parkinson^s disease

REACTIONS (5)
  - Device use error [Unknown]
  - Fall [Recovered/Resolved]
  - Hypotension [Recovering/Resolving]
  - Mobility decreased [Recovered/Resolved]
  - Hypertension [Not Recovered/Not Resolved]

NARRATIVE: CASE EVENT DATE: 20201201
